FAERS Safety Report 6681393-1 (Version None)
Quarter: 2010Q2

REPORT INFORMATION
  Report Type: 
  Country: None (occurrence: None)
  Receive Date: 20100414
  Receipt Date: 20100408
  Transmission Date: 20101027
  Serious: Yes (Other)
  Sender: FDA-Public Use
  Company Number: B0635303A

PATIENT
  Sex: Male

DRUGS (7)
  1. AVOLVE [Suspect]
     Indication: BENIGN PROSTATIC HYPERPLASIA
     Dosage: .5MG PER DAY
     Route: 048
     Dates: start: 20100106, end: 20100127
  2. UBRETID [Concomitant]
     Indication: NEUROGENIC BLADDER
     Dosage: 5MG PER DAY
     Route: 048
  3. EVIPROSTAT [Concomitant]
     Indication: BENIGN PROSTATIC HYPERPLASIA
     Route: 048
  4. FERROMIA [Concomitant]
     Dosage: 100MG PER DAY
     Route: 048
  5. ARICEPT [Concomitant]
     Indication: DEMENTIA
     Dosage: 3MG PER DAY
     Route: 048
  6. NORVASC [Concomitant]
     Indication: HYPERTENSION
     Dosage: 2.5MG PER DAY
     Route: 048
  7. JUVELA N [Concomitant]
     Indication: HYPERTENSION
     Dosage: 600MG PER DAY
     Route: 048

REACTIONS (14)
  - BLOOD ALBUMIN DECREASED [None]
  - BLOOD BILIRUBIN DECREASED [None]
  - BLOOD CHOLINESTERASE DECREASED [None]
  - BLOOD GLUCOSE INCREASED [None]
  - BLOOD TRIGLYCERIDES INCREASED [None]
  - C-REACTIVE PROTEIN INCREASED [None]
  - EOSINOPHIL COUNT INCREASED [None]
  - FEELING ABNORMAL [None]
  - HAEMATOCRIT DECREASED [None]
  - HAEMOGLOBIN DECREASED [None]
  - PROSTATIC SPECIFIC ANTIGEN INCREASED [None]
  - PROTEIN TOTAL DECREASED [None]
  - RED BLOOD CELL COUNT DECREASED [None]
  - RESTLESSNESS [None]
